FAERS Safety Report 25448152 (Version 1)
Quarter: 2025Q2

REPORT INFORMATION
  Report Type: Spontaneous
  Country: US (occurrence: US)
  Receive Date: 20250617
  Receipt Date: 20250617
  Transmission Date: 20250717
  Serious: Yes (Other)
  Sender: COOPERSURGICAL
  Company Number: US-COOPERSURGICAL, INC.-2025CPS004814

PATIENT
  Age: 35 Year
  Sex: Female
  Weight: 63.492 kg

DRUGS (1)
  1. PARAGARD T 380A [Suspect]
     Active Substance: COPPER
     Indication: Contraception
     Route: 015
     Dates: start: 20160308

REACTIONS (15)
  - Reproductive complication associated with device [Unknown]
  - Device breakage [Recovered/Resolved]
  - Foreign body in reproductive tract [Recovered/Resolved]
  - Complication of device removal [Recovered/Resolved]
  - Embedded device [Recovered/Resolved]
  - Depression [Unknown]
  - Anxiety [Unknown]
  - Sexual dysfunction [Unknown]
  - Procedural haemorrhage [Recovered/Resolved]
  - Fatigue [Recovered/Resolved]
  - Anaemia [Unknown]
  - Dyspareunia [Recovered/Resolved]
  - Heavy menstrual bleeding [Unknown]
  - Pain [Recovered/Resolved]
  - Abnormal uterine bleeding [Recovered/Resolved]

NARRATIVE: CASE EVENT DATE: 20180101
